FAERS Safety Report 5246368-8 (Version None)
Quarter: 2007Q1

REPORT INFORMATION
  Report Type: 
  Country: None (occurrence: None)
  Receive Date: 20070226
  Receipt Date: 20070221
  Transmission Date: 20070707
  Serious: Yes (Hospitalization)
  Sender: FDA-Public Use
  Company Number: US-RB-005351-07

PATIENT
  Age: 53 Year
  Sex: Male

DRUGS (1)
  1. SUBOXONE [Suspect]
     Indication: DRUG DEPENDENCE
     Dosage: STOPPED SUBOXONE RECENTLY FOR ONE WEEK DURING GALLBALDDER ATTACK, THEN RESUMED AT SAME DOSE
     Route: 060
     Dates: start: 20040101

REACTIONS (3)
  - ARTHRALGIA [None]
  - GALLBLADDER PAIN [None]
  - PYREXIA [None]
